FAERS Safety Report 19174708 (Version 1)
Quarter: 2021Q2

REPORT INFORMATION
  Report Type: Spontaneous
  Country: CN (occurrence: CN)
  Receive Date: 20210423
  Receipt Date: 20210423
  Transmission Date: 20210717
  Serious: Yes (Other)
  Sender: FDA-Public Use
  Company Number: CN-ACIC FINE CHEMICALS INC-2109699

PATIENT

DRUGS (1)
  1. TRANEXAMIC ACID. [Suspect]
     Active Substance: TRANEXAMIC ACID
     Indication: CEREBRAL HAEMORRHAGE
     Route: 042

REACTIONS (2)
  - Cerebral infarction [Unknown]
  - Off label use [Unknown]
